FAERS Safety Report 20737988 (Version 1)
Quarter: 2022Q2

REPORT INFORMATION
  Report Type: Spontaneous
  Country: TZ (occurrence: TZ)
  Receive Date: 20220422
  Receipt Date: 20220422
  Transmission Date: 20220721
  Serious: Yes (Other)
  Sender: FDA-Public Use
  Company Number: TZ-CIPLA (EU) LIMITED-2022TZ02593

PATIENT

DRUGS (3)
  1. TENOFOVIR [Suspect]
     Active Substance: TENOFOVIR
     Indication: HIV infection WHO clinical stage IV
     Dosage: UNK
     Route: 065
     Dates: start: 20111110
  2. EMTRICITABINE [Suspect]
     Active Substance: EMTRICITABINE
     Indication: HIV infection WHO clinical stage IV
     Dosage: UNK
     Route: 065
     Dates: start: 20111110
  3. LOPINAVIR\RITONAVIR [Suspect]
     Active Substance: LOPINAVIR\RITONAVIR
     Indication: HIV infection WHO clinical stage IV
     Dosage: UNK
     Route: 065
     Dates: start: 20111110

REACTIONS (1)
  - Virologic failure [Unknown]
